FAERS Safety Report 23438444 (Version 2)
Quarter: 2024Q1

REPORT INFORMATION
  Report Type: Report from Study
  Country: AU (occurrence: AU)
  Receive Date: 20240124
  Receipt Date: 20240129
  Transmission Date: 20240410
  Serious: Yes (Other)
  Sender: FDA-Public Use
  Company Number: AU-BAYER-2024A011757

PATIENT
  Sex: Male

DRUGS (1)
  1. EYLEA [Suspect]
     Active Substance: AFLIBERCEPT
     Indication: Product used for unknown indication
     Dosage: 3 EYLEA INJECTIONS TO HIS RIGHT EYE; SOLUTION FOR INJECTION; 40 MG/ML
     Route: 031

REACTIONS (2)
  - Eye haemorrhage [Unknown]
  - Fear of injection [Recovering/Resolving]
